FAERS Safety Report 23931152 (Version 1)
Quarter: 2024Q2

REPORT INFORMATION
  Report Type: Spontaneous
  Country: US (occurrence: US)
  Receive Date: 20240603
  Receipt Date: 20240603
  Transmission Date: 20240715
  Serious: No
  Sender: FDA-Public Use
  Company Number: US-TEVA-VS-3201020

PATIENT
  Age: 65 Year
  Sex: Female

DRUGS (20)
  1. PENICILLIN [Suspect]
     Active Substance: PENICILLIN
     Indication: Product used for unknown indication
     Route: 065
  2. OMEPRAZOLE [Concomitant]
     Active Substance: DONEPEZIL HYDROCHLORIDE\OMEPRAZOLE\OMEPRAZOLE MAGNESIUM
  3. MELATONIN [Concomitant]
     Active Substance: MELATONIN
  4. FLUTICASONE PROPIONATE [Concomitant]
     Active Substance: FLUTICASONE PROPIONATE
  5. VITAMINS [Concomitant]
     Active Substance: VITAMINS
  6. MAGNESIUM [Concomitant]
     Active Substance: MAGNESIUM
  7. BACLOFEN [Concomitant]
     Active Substance: BACLOFEN
  8. FISH OIL [Concomitant]
     Active Substance: FISH OIL
  9. TEMAZEPAM [Concomitant]
     Active Substance: TEMAZEPAM
  10. PREDNISONE [Concomitant]
     Active Substance: PREDNISONE
  11. LOPRESSOR [Concomitant]
     Active Substance: METOPROLOL TARTRATE
  12. PROVIGIL [Concomitant]
     Active Substance: MODAFINIL
  13. FERROUS SULFATE [Concomitant]
     Active Substance: FERROUS SULFATE
  14. VITAMIN C [Concomitant]
     Active Substance: ASCORBIC ACID
  15. ORENCIA [Concomitant]
     Active Substance: ABATACEPT
  16. GABAPENTIN [Concomitant]
     Active Substance: GABAPENTIN
  17. METHOTREXATE [Concomitant]
     Active Substance: METHOTREXATE
  18. FOLIC ACID [Concomitant]
     Active Substance: FOLIC ACID
  19. CELECOXIB [Concomitant]
     Active Substance: CELECOXIB
  20. METOPROLOL TARTRATE [Concomitant]
     Active Substance: METOPROLOL TARTRATE

REACTIONS (1)
  - Urticaria [Unknown]
